FAERS Safety Report 24306245 (Version 1)
Quarter: 2024Q3

REPORT INFORMATION
  Report Type: Spontaneous
  Country: US (occurrence: US)
  Receive Date: 20240911
  Receipt Date: 20240911
  Transmission Date: 20241016
  Serious: Yes (Hospitalization, Other)
  Sender: BRISTOL MYERS SQUIBB
  Company Number: US-BRISTOL-MYERS SQUIBB COMPANY-2024-140834

PATIENT
  Age: 82 Year
  Sex: Female
  Weight: 61.23 kg

DRUGS (3)
  1. AUGTYRO [Suspect]
     Active Substance: REPOTRECTINIB
     Indication: Non-small cell lung cancer stage IV
     Dosage: FREQUENCY: DAILY IN THE MORNING, TAKE 2 40MG PILLS A DAY.
     Route: 048
     Dates: start: 202404
  2. AUGTYRO [Suspect]
     Active Substance: REPOTRECTINIB
     Dosage: FREQUENCY: DAILY IN THE MORNING, TAKE 2 40MG PILLS A DAY.
     Route: 048
  3. AUGTYRO [Suspect]
     Active Substance: REPOTRECTINIB
     Dosage: FREQUENCY: DAILY IN THE MORNING, TAKE 2 40MG PILLS A DAY.
     Route: 048

REACTIONS (1)
  - Cerebrovascular accident [Unknown]

NARRATIVE: CASE EVENT DATE: 20240401
